FAERS Safety Report 10102751 (Version 2)
Quarter: 2014Q2

REPORT INFORMATION
  Report Type: Other
  Country: US (occurrence: US)
  Receive Date: 20140424
  Receipt Date: 20140611
  Transmission Date: 20141212
  Serious: Yes (Other)
  Sender: FDA-Public Use
  Company Number: US-GSKPPD-2014GSK000417

PATIENT
  Age: 49 Year
  Sex: Male

DRUGS (2)
  1. AVANDIA [Suspect]
     Indication: DIABETES MELLITUS
     Route: 048
     Dates: start: 20050810
  2. AVANDAMET [Suspect]
     Indication: DIABETES MELLITUS
     Dosage: 1/500 MG
     Route: 048
     Dates: start: 20050110, end: 20050809

REACTIONS (1)
  - Myocardial infarction [Unknown]
